FAERS Safety Report 12582679 (Version 1)
Quarter: 2016Q3

REPORT INFORMATION
  Report Type: Report from Study
  Country: JP (occurrence: JP)
  Receive Date: 20160722
  Receipt Date: 20160722
  Transmission Date: 20161109
  Serious: No
  Sender: FDA-Public Use
  Company Number: JP-GUERBET LLC-1055395

PATIENT
  Age: 8 Decade
  Sex: Male

DRUGS (1)
  1. LIPIODOL [Suspect]
     Active Substance: ETHIODIZED OIL
     Indication: TRANSCATHETER ARTERIAL CHEMOEMBOLISATION
     Route: 013
     Dates: start: 201509, end: 201509

REACTIONS (2)
  - Jaundice cholestatic [Recovering/Resolving]
  - Tumour embolism [Recovering/Resolving]
